FAERS Safety Report 8232739-4 (Version None)
Quarter: 2012Q1

REPORT INFORMATION
  Report Type: 
  Country: None (occurrence: None)
  Receive Date: 20120323
  Receipt Date: 20120313
  Transmission Date: 20120608
  Serious: Yes (Hospitalization, Other)
  Sender: FDA-Public Use
  Company Number: US-ELI_LILLY_AND_COMPANY-US201107002813

PATIENT
  Sex: Male
  Weight: 108.84 kg

DRUGS (33)
  1. BYETTA [Suspect]
     Dosage: 10 UG, BID
     Route: 058
     Dates: start: 20100201
  2. COZAAR [Concomitant]
     Indication: HYPERTENSION
     Dosage: 50 MG, QD
     Route: 048
  3. NEUROTIN                           /00949202/ [Concomitant]
     Dosage: 600 MG, EACH EVENING
     Route: 048
  4. TYLENOL ARTHRITIS [Concomitant]
     Indication: ARTHRITIS
  5. MULTI-VITAMINS [Concomitant]
     Indication: SUPPLEMENTATION THERAPY
  6. BYETTA [Suspect]
     Indication: TYPE 2 DIABETES MELLITUS
     Dosage: 5 UG, BID
     Route: 058
     Dates: start: 20070319, end: 20100201
  7. BYETTA [Suspect]
     Dosage: 5 UG, BID
     Route: 058
     Dates: end: 20110901
  8. FLOMAX [Concomitant]
     Indication: BENIGN PROSTATIC HYPERPLASIA
     Dosage: 0.4 MG, UNK
     Route: 048
  9. GEMFIBROZIL [Concomitant]
     Indication: LIPIDS INCREASED
     Dosage: 300 MG, BID
     Route: 048
     Dates: end: 20110701
  10. PRAVASTATIN [Concomitant]
     Indication: LIPIDS INCREASED
     Dosage: 40 MG, QD
     Route: 048
     Dates: start: 20110301
  11. ULTRAM [Concomitant]
     Indication: PAIN
     Dosage: 50 MG, PRN
     Route: 048
  12. PRISTIQ [Concomitant]
     Indication: DEPRESSION
     Dosage: 50 MG, QD
     Route: 048
  13. NASONEX [Concomitant]
     Indication: PRODUCT USED FOR UNKNOWN INDICATION
  14. ADVAIR DISKUS 100/50 [Concomitant]
     Indication: PRODUCT USED FOR UNKNOWN INDICATION
  15. LASIX [Concomitant]
     Dosage: 80 MG, BID
     Route: 048
     Dates: start: 20110401
  16. LORTAB [Concomitant]
     Indication: PAIN
     Dosage: UNK, PRN
     Route: 048
  17. VALIUM [Concomitant]
     Indication: ANXIETY
     Dosage: 5 MG, EACH MORNING
     Route: 048
  18. LASIX [Concomitant]
     Indication: HYPERTENSION
     Dosage: 80 MG, QD
     Route: 048
     Dates: end: 20110401
  19. SYMBICORT [Concomitant]
     Indication: DYSPNOEA
     Dosage: UNK, EACH EVENING
     Route: 055
  20. DARVOCET [Concomitant]
     Indication: PRODUCT USED FOR UNKNOWN INDICATION
  21. ALLOPURINOL [Concomitant]
     Indication: GOUT
     Dosage: 300 MG, UNK
     Route: 048
  22. NEUROTIN                           /00949202/ [Concomitant]
     Indication: NEUROPATHY PERIPHERAL
     Dosage: 300 MG, EACH MORNING
     Route: 048
  23. FLEXERIL [Concomitant]
     Indication: MYALGIA
     Dosage: 5 MG, PRN
     Route: 048
  24. NOVOLOG [Concomitant]
     Indication: TYPE 2 DIABETES MELLITUS
     Dosage: UNK
     Route: 058
  25. POTASSIUM [Concomitant]
     Dosage: UNK
     Route: 048
  26. PREVACID [Concomitant]
     Indication: GASTROOESOPHAGEAL REFLUX DISEASE
     Dosage: 20 MG, BID
     Route: 048
  27. VITAMIN D2 [Concomitant]
     Indication: VITAMIN D DEFICIENCY
     Dosage: 50000 IU, WEEKLY (1/W)
     Route: 048
  28. TOPROL-XL [Concomitant]
     Indication: HYPERTENSION
     Dosage: 50 MG, BID
     Route: 048
  29. BUMEX [Concomitant]
     Indication: PRODUCT USED FOR UNKNOWN INDICATION
  30. ASPIRIN [Concomitant]
     Indication: CARDIOVASCULAR EVENT PROPHYLAXIS
     Dosage: 81 MG, QD
  31. VALIUM [Concomitant]
     Dosage: 2.5 MG, EACH EVENING
     Route: 048
  32. RITALIN-SR [Concomitant]
     Indication: POOR QUALITY SLEEP
     Dosage: 20 MG, QD
  33. VYTORIN [Concomitant]
     Indication: PRODUCT USED FOR UNKNOWN INDICATION

REACTIONS (9)
  - NAUSEA [None]
  - OFF LABEL USE [None]
  - WEIGHT DECREASED [None]
  - BLOOD PRESSURE DECREASED [None]
  - LOSS OF CONSCIOUSNESS [None]
  - VOMITING [None]
  - CORONARY ARTERY OCCLUSION [None]
  - DIZZINESS [None]
  - BLOOD GLUCOSE DECREASED [None]
